FAERS Safety Report 5989913-7 (Version None)
Quarter: 2008Q4

REPORT INFORMATION
  Report Type: 
  Country: None (occurrence: None)
  Receive Date: 20081210
  Receipt Date: 20081124
  Transmission Date: 20090506
  Serious: Yes (Death)
  Sender: FDA-Public Use
  Company Number: 100#08#2008-05927

PATIENT
  Age: 23 Year
  Sex: Male

DRUGS (2)
  1. CARBOPLATIN [Suspect]
     Indication: PROSTATE CANCER
  2. ETOPOSIDE [Suspect]
     Indication: PROSTATE CANCER
     Dosage: 100 MG/M2 ON DAYS 1, 2 AND 3

REACTIONS (1)
  - RESPIRATORY ARREST [None]
